FAERS Safety Report 4977617-9 (Version None)
Quarter: 2006Q2

REPORT INFORMATION
  Report Type: 
  Country: None (occurrence: None)
  Receive Date: 20060414
  Receipt Date: 20050823
  Transmission Date: 20061013
  Serious: Yes (Hospitalization)
  Sender: FDA-Public Use
  Company Number: 2005BH001212

PATIENT
  Age: 61 Year
  Sex: Male
  Weight: 70 kg

DRUGS (10)
  1. HEPARIN SODIUM [Suspect]
  2. POSACONAZOLE [Suspect]
     Indication: FUNGAL INFECTION
     Dosage: 800 MG; EVERY DAY; PO
     Route: 048
     Dates: start: 20050629
  3. METHOTREXATE [Suspect]
     Indication: ACUTE LYMPHOCYTIC LEUKAEMIA
     Dosage: 16 TAB;EVERY DAY;PO
     Route: 048
  4. PURINETHOL [Suspect]
     Indication: ACUTE LYMPHOCYTIC LEUKAEMIA
     Dosage: 5 TAB;EVERY DAY;PO
     Route: 048
  5. THIAMINE HCL [Concomitant]
  6. ALDACTONE [Concomitant]
  7. CELECTOL [Concomitant]
  8. INSULIN [Concomitant]
  9. MOPRAL [Concomitant]
  10. VALACYCLOVIR HCL [Concomitant]

REACTIONS (3)
  - ANAEMIA [None]
  - LEUKOPENIA [None]
  - THROMBOCYTOPENIA [None]
